FAERS Safety Report 9719029 (Version 2)
Quarter: 2013Q4

REPORT INFORMATION
  Report Type: Spontaneous
  Country: IT (occurrence: IT)
  Receive Date: 20131127
  Receipt Date: 20131205
  Transmission Date: 20140711
  Serious: Yes (Other)
  Sender: FDA-Public Use
  Company Number: IT-PFIZER INC-2013336369

PATIENT
  Age: 72 Year
  Sex: Male

DRUGS (12)
  1. ATORVASTATIN CALCIUM [Suspect]
     Indication: HYPERCHOLESTEROLAEMIA
     Dosage: 40 MG, DAILY
     Dates: end: 201202
  2. ATORVASTATIN CALCIUM [Interacting]
     Indication: HYPERTRIGLYCERIDAEMIA
  3. QUETIAPINE FUMARATE [Interacting]
     Indication: ABNORMAL BEHAVIOUR
     Dosage: 50 MG, DAILY
  4. SERTRALINE HCL [Interacting]
     Indication: ABNORMAL BEHAVIOUR
     Dosage: 25 MG, DAILY
  5. OMEPRAZOLE [Interacting]
     Dosage: 20 MG, DAILY
  6. NITROGLYCERIN [Interacting]
     Dosage: 10 MG, DAILY
     Route: 062
  7. BISOPROLOL FUMARATE [Interacting]
     Dosage: 2.5 MG, DAILY
  8. VALSARTAN [Interacting]
     Dosage: 20 MG, DAILY
  9. FUROSEMIDE [Interacting]
     Indication: DIURETIC THERAPY
     Dosage: 25 MG, 2X/WEEK
  10. RANOLAZINE [Interacting]
     Indication: ANGINA PECTORIS
     Dosage: 1000 MG, DAILY
     Dates: start: 201107
  11. ACETYLSALICYLIC ACID [Interacting]
     Dosage: 100 MG, DAILY
  12. ALLOPURINOL [Interacting]
     Dosage: 150 MG, DAILY

REACTIONS (2)
  - Drug interaction [Unknown]
  - Rhabdomyolysis [Recovered/Resolved]
